FAERS Safety Report 10456860 (Version 1)
Quarter: 2014Q3

REPORT INFORMATION
  Report Type: Spontaneous
  Country: US (occurrence: None)
  Receive Date: 20140828
  Receipt Date: 20140828
  Transmission Date: 20150326
  Serious: Yes (Hospitalization, Other)
  Sender: FDA-Public Use
  Company Number: 2013-PEL-000004

PATIENT
  Age: 52 Year
  Sex: Female
  Weight: 69.8 kg

DRUGS (3)
  1. ONDANSETRON HYDROCHLORIDE (ONDANSETRON HYDROCHLORIDE) [Suspect]
     Active Substance: ONDANSETRON HYDROCHLORIDE
     Indication: PROPHYLAXIS
     Route: 042
     Dates: start: 20130426, end: 20130426
  2. ISOFLURANE. [Suspect]
     Active Substance: ISOFLURANE
  3. PROPOFOL-LIPURO [Suspect]
     Active Substance: PROPOFOL
     Indication: GENERAL ANAESTHESIA
     Route: 042
     Dates: start: 20130426, end: 20130426

REACTIONS (6)
  - Aphasia [None]
  - Tearfulness [None]
  - Slow response to stimuli [None]
  - Hyperventilation [None]
  - Mutism [None]
  - Anterograde amnesia [None]

NARRATIVE: CASE EVENT DATE: 20130426
